FAERS Safety Report 4475327-8 (Version None)
Quarter: 2004Q4

REPORT INFORMATION
  Report Type: 
  Country: None (occurrence: None)
  Receive Date: 20041015
  Receipt Date: 20040728
  Transmission Date: 20050328
  Serious: Yes (Life-Threatening, Hospitalization)
  Sender: FDA-Public Use
  Company Number: 200412443JP

PATIENT
  Age: 62 Year
  Sex: Male
  Weight: 73 kg

DRUGS (8)
  1. AMARYL [Suspect]
     Indication: BLOOD GLUCOSE ABNORMAL
     Route: 048
     Dates: start: 20040713, end: 20040729
  2. DIGOXIN [Concomitant]
     Route: 048
  3. LASIX [Concomitant]
     Route: 048
  4. ALDACTONE-A [Concomitant]
     Route: 048
     Dates: end: 20040728
  5. NU LOTAN [Concomitant]
     Route: 048
  6. SELBEX [Concomitant]
     Route: 048
  7. 8-HOUR BAYER [Concomitant]
     Route: 048
     Dates: end: 20040728
  8. WARFARIN SODIUM [Concomitant]
     Route: 048

REACTIONS (2)
  - BLOOD POTASSIUM INCREASED [None]
  - LABORATORY TEST INTERFERENCE [None]
